FAERS Safety Report 19255509 (Version 3)
Quarter: 2022Q4

REPORT INFORMATION
  Report Type: Report from Study
  Country: BR (occurrence: BR)
  Receive Date: 20210513
  Receipt Date: 20221230
  Transmission Date: 20230113
  Serious: Yes (Death, Disabling, Other)
  Sender: FDA-Public Use
  Company Number: BR-TAKEDA-2021TUS030309

PATIENT
  Sex: Male
  Weight: 30 kg

DRUGS (2)
  1. IDURSULFASE [Suspect]
     Active Substance: IDURSULFASE
     Indication: Mucopolysaccharidosis II
     Dosage: UNK
     Route: 042
  2. IDURSULFASE [Suspect]
     Active Substance: IDURSULFASE
     Dosage: 3 DOSAGE FORM, 1/WEEK
     Route: 042
     Dates: start: 2004

REACTIONS (3)
  - Disease progression [Fatal]
  - Bedridden [Not Recovered/Not Resolved]
  - Therapeutic product effect incomplete [Not Recovered/Not Resolved]

NARRATIVE: CASE EVENT DATE: 20140101
